FAERS Safety Report 11385927 (Version 1)
Quarter: 2015Q3

REPORT INFORMATION
  Report Type: Spontaneous
  Country: US (occurrence: None)
  Receive Date: 20150813
  Receipt Date: 20150813
  Transmission Date: 20151125
  Serious: Yes (Hospitalization)
  Sender: FDA-Public Use
  Company Number: None

PATIENT
  Age: 79 Year
  Sex: Male
  Weight: 84.6 kg

DRUGS (1)
  1. ASPIRIN. [Suspect]
     Active Substance: ASPIRIN
     Route: 048
     Dates: start: 20090827, end: 20150808

REACTIONS (8)
  - Gastritis [None]
  - Orthostatic hypotension [None]
  - Abdominal pain lower [None]
  - Gastrointestinal arteriovenous malformation [None]
  - Gastric haemorrhage [None]
  - Diverticulum intestinal haemorrhagic [None]
  - Polyp [None]
  - Duodenitis [None]

NARRATIVE: CASE EVENT DATE: 20150809
